FAERS Safety Report 13778519 (Version 2)
Quarter: 2017Q3

REPORT INFORMATION
  Report Type: Report from Study
  Country: US (occurrence: US)
  Receive Date: 20170721
  Receipt Date: 20170731
  Transmission Date: 20171127
  Serious: Yes (Hospitalization)
  Sender: FDA-Public Use
  Company Number: US-ACTELION-A-US2016-146899

PATIENT
  Age: 50 Year
  Sex: Female
  Weight: 65.31 kg

DRUGS (11)
  1. VELETRI [Suspect]
     Active Substance: EPOPROSTENOL
     Dosage: 18 NG/KG, PER MIN
     Route: 042
  2. VELETRI [Suspect]
     Active Substance: EPOPROSTENOL
     Indication: PULMONARY ARTERIAL HYPERTENSION
     Dosage: 21 NG/KG, PER MIN
     Route: 042
  3. OXYCODONE [Concomitant]
     Active Substance: OXYCODONE
  4. XARELTO [Concomitant]
     Active Substance: RIVAROXABAN
  5. CYMBALTA [Concomitant]
     Active Substance: DULOXETINE HYDROCHLORIDE
  6. ADCIRCA [Concomitant]
     Active Substance: TADALAFIL
  7. VELETRI [Suspect]
     Active Substance: EPOPROSTENOL
     Dosage: UNK
     Route: 042
     Dates: start: 20161123
  8. DICLOFENAC [Concomitant]
     Active Substance: DICLOFENAC
  9. OXACILLIN [Suspect]
     Active Substance: OXACILLIN SODIUM
     Indication: INFECTION
     Dosage: UNK
     Route: 051
     Dates: end: 20170624
  10. LETAIRIS [Concomitant]
     Active Substance: AMBRISENTAN
  11. NEXIUM [Concomitant]
     Active Substance: ESOMEPRAZOLE MAGNESIUM

REACTIONS (16)
  - Pain in jaw [Unknown]
  - Catheter site pain [Recovered/Resolved]
  - Back pain [Unknown]
  - Headache [Unknown]
  - Staphylococcal bacteraemia [Recovered/Resolved]
  - Pyrexia [Recovered/Resolved]
  - Catheter site vesicles [Recovered/Resolved]
  - Drug hypersensitivity [Recovered/Resolved]
  - Catheter site infection [Recovered/Resolved]
  - Catheter site discharge [Recovered/Resolved]
  - Oedema [Unknown]
  - Dyspnoea exertional [Unknown]
  - Chills [Recovered/Resolved]
  - Blood culture positive [Recovered/Resolved]
  - Pain in extremity [Unknown]
  - Administration site rash [Unknown]

NARRATIVE: CASE EVENT DATE: 20170616
